FAERS Safety Report 25105624 (Version 1)
Quarter: 2025Q1

REPORT INFORMATION
  Report Type: Spontaneous
  Country: US (occurrence: US)
  Receive Date: 20250321
  Receipt Date: 20250321
  Transmission Date: 20250408
  Serious: No
  Sender: ESPERION THERAPEUTICS
  Company Number: US-ESPERIONTHERAPEUTICS-2024USA01443

PATIENT
  Age: 63 Year
  Sex: Female
  Weight: 61.678 kg

DRUGS (2)
  1. NEXLETOL [Suspect]
     Active Substance: BEMPEDOIC ACID
     Indication: Hypercholesterolaemia
     Dosage: 180 MILLIGRAM, QD
     Route: 048
     Dates: start: 20240816, end: 20240916
  2. ASPIRIN [Concomitant]
     Active Substance: ASPIRIN
     Route: 065

REACTIONS (17)
  - Oropharyngeal pain [Unknown]
  - Malaise [Unknown]
  - Chills [Unknown]
  - Upper-airway cough syndrome [Unknown]
  - Foot fracture [Unknown]
  - Feeling hot [Unknown]
  - Hypotension [Unknown]
  - Skin swelling [Unknown]
  - Gait inability [Unknown]
  - Respiratory tract infection [Not Recovered/Not Resolved]
  - Aphonia [Not Recovered/Not Resolved]
  - Lower respiratory tract congestion [Not Recovered/Not Resolved]
  - Cough [Not Recovered/Not Resolved]
  - Dysphonia [Not Recovered/Not Resolved]
  - Tendon disorder [Unknown]
  - Pain in extremity [Unknown]
  - Muscle spasms [Unknown]

NARRATIVE: CASE EVENT DATE: 20240101
